FAERS Safety Report 7215542-3 (Version None)
Quarter: 2011Q1

REPORT INFORMATION
  Report Type: 
  Country: None (occurrence: None)
  Receive Date: 20110107
  Receipt Date: 20101228
  Transmission Date: 20110831
  Serious: Yes (Hospitalization)
  Sender: FDA-Public Use
  Company Number: CA-ROCHE-744803

PATIENT
  Sex: Male
  Weight: 73 kg

DRUGS (4)
  1. TRASTUZUMAB [Suspect]
     Dosage: DOSAGE ADMINISTRATION ERROR
     Route: 042
     Dates: start: 20100716, end: 20100716
  2. TRASTUZUMAB [Suspect]
     Route: 042
  3. PARIET [Concomitant]
  4. TRASTUZUMAB [Suspect]
     Dosage: FORM: INFUSION
     Route: 042
     Dates: start: 20100430

REACTIONS (6)
  - BILE DUCT OBSTRUCTION [None]
  - VOMITING [None]
  - INCORRECT DOSE ADMINISTERED [None]
  - NAUSEA [None]
  - PAIN [None]
  - NEOPLASM MALIGNANT [None]
